FAERS Safety Report 9153383 (Version 2)
Quarter: 2013Q2

REPORT INFORMATION
  Report Type: Report from Study
  Country: JP (occurrence: JP)
  Receive Date: 20130311
  Receipt Date: 20130403
  Transmission Date: 20140414
  Serious: Yes (Death)
  Sender: FDA-Public Use
  Company Number: JP-JNJFOC-20130301734

PATIENT
  Age: 60 Year
  Sex: Female
  Weight: 51 kg

DRUGS (9)
  1. ONE DURO [Suspect]
     Indication: CANCER PAIN
     Route: 062
     Dates: start: 20121218, end: 20130103
  2. ONE DURO [Suspect]
     Indication: CANCER PAIN
     Route: 062
     Dates: start: 20121214, end: 20121217
  3. DESYREL [Concomitant]
     Indication: CANCER PAIN
     Route: 048
     Dates: start: 20121210, end: 20121216
  4. WYPAX [Concomitant]
     Indication: CANCER PAIN
     Dosage: P.R.N
     Route: 048
     Dates: start: 20121122, end: 20121231
  5. LOXONIN [Concomitant]
     Indication: CANCER PAIN
     Dosage: P.R.N
     Route: 048
     Dates: start: 20121212, end: 20121218
  6. ROPION [Concomitant]
     Indication: CANCER PAIN
     Dosage: P.R.N
     Route: 042
     Dates: start: 20121213, end: 20130102
  7. RINDERON [Concomitant]
     Indication: CANCER PAIN
     Dosage: P.R.N
     Route: 065
     Dates: start: 20121213, end: 20121221
  8. GASTER [Concomitant]
     Indication: CANCER PAIN
     Dosage: P.R.N
     Route: 065
     Dates: start: 20121213, end: 20121218
  9. HUMULIN N [Concomitant]
     Indication: CANCER PAIN
     Dosage: P.R.N
     Route: 065
     Dates: start: 20121219, end: 20121223

REACTIONS (3)
  - Hepatic cancer [Fatal]
  - Somnolence [Recovered/Resolved]
  - Wrong technique in drug usage process [Unknown]
